FAERS Safety Report 11099012 (Version 1)
Quarter: 2015Q2

REPORT INFORMATION
  Report Type: Spontaneous
  Country: US (occurrence: US)
  Receive Date: 20150508
  Receipt Date: 20150508
  Transmission Date: 20150821
  Serious: No
  Sender: FDA-Public Use
  Company Number: US-ASTRAZENECA-2015SE40597

PATIENT
  Age: 79 Year
  Sex: Male

DRUGS (4)
  1. GAS-X [Suspect]
     Active Substance: DIMETHICONE
     Indication: ERUCTATION
     Route: 048
  2. GAS-X [Suspect]
     Active Substance: DIMETHICONE
     Indication: FLATULENCE
     Route: 048
  3. ZANTAC [Concomitant]
     Active Substance: RANITIDINE HYDROCHLORIDE
  4. NEXIUM [Suspect]
     Active Substance: ESOMEPRAZOLE MAGNESIUM
     Route: 048

REACTIONS (3)
  - Flatulence [Recovering/Resolving]
  - Eructation [Recovering/Resolving]
  - Drug ineffective [Unknown]
